FAERS Safety Report 7978078-8 (Version None)
Quarter: 2011Q4

REPORT INFORMATION
  Report Type: 
  Country: None (occurrence: None)
  Receive Date: 20111214
  Receipt Date: 20111203
  Transmission Date: 20120403
  Serious: Yes (Hospitalization, Other)
  Sender: FDA-Public Use
  Company Number: US-PAR PHARMACEUTICAL, INC-2011SCPR003466

PATIENT

DRUGS (1)
  1. IBUPROFEN [Suspect]
     Indication: PRODUCT USED FOR UNKNOWN INDICATION
     Dosage: 70 PILLS (56 G)
     Route: 048

REACTIONS (6)
  - ATAXIA [None]
  - HYPERNATRAEMIA [None]
  - BLOOD GLUCOSE INCREASED [None]
  - OVERDOSE [None]
  - ACIDOSIS [None]
  - TOXIC ENCEPHALOPATHY [None]
